FAERS Safety Report 16876806 (Version 4)
Quarter: 2025Q4

REPORT INFORMATION
  Report Type: Spontaneous
  Country: US (occurrence: US)
  Receive Date: 20191002
  Receipt Date: 20251015
  Transmission Date: 20260118
  Serious: Yes (Hospitalization, Other)
  Sender: ACCORD
  Company Number: US-ACCORD-156108

PATIENT
  Age: 51 Year
  Sex: Female

DRUGS (12)
  1. TACROLIMUS [Interacting]
     Active Substance: TACROLIMUS
     Indication: Immunosuppressant drug therapy
     Dosage: TARGET TROUGH LEVEL OF 10-12 MG/DL
     Dates: start: 201512, end: 2016
  2. MYCOPHENOLATE MOFETIL [Interacting]
     Active Substance: MYCOPHENOLATE MOFETIL
     Indication: Immunosuppressant drug therapy
     Route: 048
     Dates: start: 201512, end: 2016
  3. VALGANCICLOVIR HYDROCHLORIDE [Interacting]
     Active Substance: VALGANCICLOVIR HYDROCHLORIDE
     Indication: Antiviral prophylaxis
     Dosage: PROPHYLACTIC DOSE
     Dates: start: 201512, end: 2016
  4. THYMOCYTE IMMUNE GLOBULIN NOS [Suspect]
     Active Substance: THYMOCYTE IMMUNE GLOBULIN NOS
     Indication: Immunosuppressant drug therapy
     Dosage: 3 DOSES OF 100 MG (1.5 MG/KG)
     Dates: start: 201512
  5. SULFAMETHOXAZOLE\TRIMETHOPRIM [Suspect]
     Active Substance: SULFAMETHOXAZOLE\TRIMETHOPRIM
     Indication: Antifungal prophylaxis
     Dosage: 800/160 MG DAILY
     Dates: start: 201512, end: 2016
  6. PREDNISONE [Suspect]
     Active Substance: PREDNISONE
     Indication: Immunosuppressant drug therapy
     Dosage: INCREASED TO 15 MG DAILY
     Dates: start: 201512, end: 2016
  7. PREDNISONE [Suspect]
     Active Substance: PREDNISONE
     Indication: Immunosuppression
     Dosage: CONTINUED TO BE TAPERED
     Dates: start: 201512, end: 2016
  8. TACROLIMUS [Interacting]
     Active Substance: TACROLIMUS
     Indication: Immunosuppressant drug therapy
     Dosage: TWICE DAILY, ALSO RECEIVED 17 MG (12 HOURS)
     Dates: start: 2016, end: 2016
  9. MYCOPHENOLATE MOFETIL [Interacting]
     Active Substance: MYCOPHENOLATE MOFETIL
     Indication: Immunosuppressant drug therapy
     Route: 048
     Dates: start: 2016, end: 2016
  10. TACROLIMUS [Interacting]
     Active Substance: TACROLIMUS
     Indication: Immunosuppressant drug therapy
     Dosage: TARGET THE GOAL TROUGH OF 8-10 MG/DL
     Dates: end: 2016
  11. TACROLIMUS [Interacting]
     Active Substance: TACROLIMUS
     Indication: Immunosuppressant drug therapy
     Dates: start: 201512, end: 2016
  12. TACROLIMUS [Interacting]
     Active Substance: TACROLIMUS
     Indication: Immunosuppressant drug therapy
     Dosage: TAC TROUGH LEVEL WAS REDUCED TO 6-7 NG/DL
     Dates: start: 201512, end: 2016

REACTIONS (5)
  - Tremor [Unknown]
  - Neutropenia [Recovered/Resolved]
  - Myelosuppression [Recovered/Resolved]
  - Drug interaction [Recovered/Resolved]
  - Hyperkalaemia [Unknown]

NARRATIVE: CASE EVENT DATE: 20160101
